FAERS Safety Report 6368620-5 (Version None)
Quarter: 2009Q3

REPORT INFORMATION
  Report Type: 
  Country: None (occurrence: None)
  Receive Date: 20090922
  Receipt Date: 20090916
  Transmission Date: 20100115
  Serious: Yes (Death)
  Sender: FDA-Public Use
  Company Number: FR-ROCHE-656977

PATIENT
  Age: 21 Year
  Sex: Male

DRUGS (3)
  1. TAMIFLU [Suspect]
     Indication: DRUG USE FOR UNKNOWN INDICATION
     Route: 065
  2. DOLIPRANE [Concomitant]
  3. ASPEGIC 1000 [Concomitant]

REACTIONS (1)
  - DEATH [None]
